FAERS Safety Report 4433141-3 (Version None)
Quarter: 2004Q3

REPORT INFORMATION
  Report Type: 
  Country: None (occurrence: None)
  Receive Date: 20040823
  Receipt Date: 20040809
  Transmission Date: 20050211
  Serious: Yes (Hospitalization)
  Sender: FDA-Public Use
  Company Number: 196269

PATIENT
  Age: 57 Year
  Sex: Female
  Weight: 178 kg

DRUGS (11)
  1. AVONEX [Suspect]
     Indication: MULTIPLE SCLEROSIS
     Dates: start: 19980101
  2. AVONEX [Suspect]
     Indication: MULTIPLE SCLEROSIS
  3. ADVAIR DISKUS 100/50 [Concomitant]
  4. METHOCARBAMOL [Concomitant]
  5. MECLIZINE [Concomitant]
  6. CLARINEX [Concomitant]
  7. FLONASE [Concomitant]
  8. CALCIUM [Concomitant]
  9. VITAMIN D [Concomitant]
  10. CENTRUM [Concomitant]
  11. MOTRIN [Concomitant]

REACTIONS (9)
  - ASPERGILLOSIS [None]
  - BRONCHIAL OBSTRUCTION [None]
  - INFLAMMATION [None]
  - MITRAL VALVE INCOMPETENCE [None]
  - NECROSIS [None]
  - PULMONARY ARTERIAL PRESSURE INCREASED [None]
  - PULMONARY FUNCTION TEST ABNORMAL [None]
  - PULMONARY MASS [None]
  - VENTRICULAR DYSFUNCTION [None]
